FAERS Safety Report 6443530-3 (Version None)
Quarter: 2009Q4

REPORT INFORMATION
  Report Type: 
  Country: None (occurrence: None)
  Receive Date: 20091117
  Receipt Date: 20091110
  Transmission Date: 20100525
  Serious: Yes (Hospitalization)
  Sender: FDA-Public Use
  Company Number: DE-ABBOTT-09P-062-0607782-00

PATIENT
  Sex: Female
  Weight: 85 kg

DRUGS (1)
  1. ZEMPLAR [Suspect]
     Indication: RENAL FAILURE CHRONIC
     Dates: start: 20090622

REACTIONS (3)
  - CONTUSION [None]
  - FALL [None]
  - SKIN LACERATION [None]
